FAERS Safety Report 18039222 (Version 1)
Quarter: 2020Q3

REPORT INFORMATION
  Report Type: Spontaneous
  Country: ES (occurrence: ES)
  Receive Date: 20200718
  Receipt Date: 20200718
  Transmission Date: 20201103
  Serious: Yes (Other)
  Sender: FDA-Public Use
  Company Number: ES-CADILA HEALTHCARE LIMITED-ES-ZYDUS-030541

PATIENT

DRUGS (1)
  1. SIMVASTATIN. [Suspect]
     Active Substance: SIMVASTATIN
     Indication: PRODUCT USED FOR UNKNOWN INDICATION
     Dosage: 20 MILLIGRAM,(INTERVAL :1 DAYS)
     Route: 048
     Dates: start: 2011

REACTIONS (2)
  - Depressed level of consciousness [Unknown]
  - Balance disorder [Unknown]

NARRATIVE: CASE EVENT DATE: 201710
